FAERS Safety Report 4946684-0 (Version None)
Quarter: 2006Q1

REPORT INFORMATION
  Report Type: 
  Country: None (occurrence: None)
  Receive Date: 20060317
  Receipt Date: 20050113
  Transmission Date: 20060701
  Serious: Yes (Death, Hospitalization)
  Sender: FDA-Public Use
  Company Number: US-MERCK-0501USA02276

PATIENT
  Age: 76 Year
  Sex: Male
  Weight: 127 kg

DRUGS (9)
  1. LABETALOL HYDROCHLORIDE [Concomitant]
     Route: 048
  2. VIOXX [Suspect]
     Indication: ARTHRITIS
     Route: 048
     Dates: start: 20000101, end: 20020701
  3. TYLENOL (CAPLET) [Concomitant]
     Route: 065
  4. ZOLOFT [Concomitant]
     Route: 048
  5. PRILOSEC [Concomitant]
     Route: 048
  6. THEOPHYLLINE [Concomitant]
     Route: 048
  7. COUMADIN [Concomitant]
     Route: 048
  8. BEXTRA [Concomitant]
     Indication: ARTHRITIS
     Route: 048
  9. DEMADEX [Concomitant]
     Route: 048

REACTIONS (15)
  - ABDOMINAL PAIN UPPER [None]
  - AORTIC ANEURYSM [None]
  - CARDIAC ARREST [None]
  - CARDIO-RESPIRATORY ARREST [None]
  - CARDIOMEGALY [None]
  - CHEST PAIN [None]
  - EXSANGUINATION [None]
  - GASTROINTESTINAL HAEMORRHAGE [None]
  - HEADACHE [None]
  - HERNIA [None]
  - MEDIASTINAL DISORDER [None]
  - MYOCARDIAL INFARCTION [None]
  - NAUSEA [None]
  - NECK PAIN [None]
  - SINUS BRADYCARDIA [None]
